FAERS Safety Report 8913509 (Version 1)
Quarter: 2012Q4

REPORT INFORMATION
  Report Type: Spontaneous
  Country: US (occurrence: None)
  Receive Date: 20121114
  Receipt Date: 20121114
  Transmission Date: 20130627
  Serious: Yes (Other)
  Sender: FDA-Public Use
  Company Number: HA12-314-AE

PATIENT
  Age: 81 Year
  Sex: Male

DRUGS (4)
  1. METFORMIN [Suspect]
     Indication: PRODUCT USED FOR UNKNOWN INDICATION
     Route: 048
  2. FUROSEMIDE [Concomitant]
  3. CLOPIDOGREL BISULPHATE [Concomitant]
  4. AMIODARONE [Concomitant]

REACTIONS (8)
  - Intestinal haemorrhage [None]
  - Thrombosis [None]
  - Haematocrit decreased [None]
  - Haemoglobin decreased [None]
  - Constipation [None]
  - Oedema peripheral [None]
  - Myocardial infarction [None]
  - Renal disorder [None]
